FAERS Safety Report 16759540 (Version 1)
Quarter: 2019Q4

REPORT INFORMATION
  Report Type: Spontaneous
  Country: US (occurrence: US)
  Receive Date: 20190829
  Receipt Date: 20190829
  Transmission Date: 20200122
  Serious: Yes (Life-Threatening)
  Sender: FDA-Public Use
  Company Number: None

PATIENT
  Age: 61 Year
  Sex: Female
  Weight: 77.4 kg

DRUGS (12)
  1. PROAIR RESPICLICK [Concomitant]
     Active Substance: ALBUTEROL SULFATE
  2. ISOQUERCITRIN [Concomitant]
  3. PRIMATENE MIST [Suspect]
     Active Substance: EPINEPHRINE
     Indication: HYPERSENSITIVITY
     Route: 055
     Dates: start: 20190102, end: 20190104
  4. BHI ALLERGY TABLETS BY HEEL (HOMEOPATHIC) [Concomitant]
  5. ALPHA-GLYCOSYL [Concomitant]
  6. REDUCED GLUTATHIONE [Concomitant]
  7. EPI-PEN AUTO-INJECTOR [Concomitant]
  8. CURCUMIN [Concomitant]
     Active Substance: CURCUMIN
  9. ASTHMANEFRIN VIALS (RACEPINEPHRINE) [Concomitant]
  10. VITAMIN C + D3 [Concomitant]
  11. DYE-FREE BENADRYL GEL CAPS [Concomitant]
  12. MAGNESIUM [Concomitant]
     Active Substance: MAGNESIUM

REACTIONS (2)
  - Allergic reaction to excipient [None]
  - Anaphylactic reaction [None]

NARRATIVE: CASE EVENT DATE: 20190102
